FAERS Safety Report 12665287 (Version 5)
Quarter: 2018Q1

REPORT INFORMATION
  Report Type: Report from Study
  Country: BR (occurrence: BR)
  Receive Date: 20160818
  Receipt Date: 20180213
  Transmission Date: 20180508
  Serious: Yes (Other)
  Sender: FDA-Public Use
  Company Number: PHHY2014BR011814

PATIENT
  Age: 55 Year
  Sex: Male
  Weight: 101 kg

DRUGS (23)
  1. SANDOSTATIN LAR DEPOT [Suspect]
     Active Substance: OCTREOTIDE ACETATE
     Indication: ACROMEGALY
     Dosage: 10 MG, QMO
     Route: 030
     Dates: start: 2010
  2. OMEPRAZOLE. [Concomitant]
     Active Substance: OMEPRAZOLE
     Indication: ABDOMINAL PAIN UPPER
     Dosage: 1 DF, QD
     Route: 048
  3. TAPAZOLE [Concomitant]
     Active Substance: METHIMAZOLE
     Indication: THYROID MASS
     Dosage: 1 DF, QD
     Route: 048
     Dates: start: 2009
  4. SPIRONOLACTONE. [Concomitant]
     Active Substance: SPIRONOLACTONE
     Indication: CARDIAC DISORDER
  5. TAPAZOL [Concomitant]
     Indication: CARDIAC DISORDER
     Dosage: 1 DF, QD
     Route: 048
  6. CARVEDILOL. [Concomitant]
     Active Substance: CARVEDILOL
     Indication: BLOOD PRESSURE INCREASED
     Dosage: 2 DF, QD
     Route: 048
  7. SPIRONOLACTONE. [Concomitant]
     Active Substance: SPIRONOLACTONE
     Indication: BLOOD PRESSURE INCREASED
     Dosage: 1 DF, QD
     Route: 048
  8. SANDOSTATIN LAR DEPOT [Suspect]
     Active Substance: OCTREOTIDE ACETATE
     Dosage: 20 MG, QMO
     Route: 030
     Dates: start: 2011
  9. DOXAZOSIN [Concomitant]
     Active Substance: DOXAZOSIN\DOXAZOSIN MESYLATE
     Indication: NEOPLASM PROSTATE
     Dosage: 1 DF, QD
     Route: 048
  10. PEGVISOMANT [Concomitant]
     Active Substance: PEGVISOMANT
     Dosage: 30 MG, Q3W
  11. CABERGOLINE. [Suspect]
     Active Substance: CABERGOLINE
     Indication: ACROMEGALY
     Dosage: 1 DF, QD
     Route: 048
     Dates: start: 2009
  12. CARVEDILOL. [Concomitant]
     Active Substance: CARVEDILOL
     Indication: CARDIOMEGALY
     Dosage: 3 DF, QD
     Route: 048
     Dates: start: 2009
  13. CARVEDILOL. [Concomitant]
     Active Substance: CARVEDILOL
     Dosage: 1 DF, UNK
     Route: 048
  14. PEGVISOMANT [Concomitant]
     Active Substance: PEGVISOMANT
     Indication: ACROMEGALY
     Dosage: 1 DF, QD
     Route: 058
  15. SANDOSTATIN LAR DEPOT [Suspect]
     Active Substance: OCTREOTIDE ACETATE
     Dosage: 30 MG, QMO
     Route: 030
  16. TAPAZOLE [Concomitant]
     Active Substance: METHIMAZOLE
     Dosage: 1 DF, QD
     Route: 048
  17. GABAPENTIN. [Concomitant]
     Active Substance: GABAPENTIN
     Indication: ACROMEGALY
  18. ENALAPRIL [Concomitant]
     Active Substance: ENALAPRIL
     Indication: BLOOD PRESSURE INCREASED
     Dosage: 2 DF, QD
     Route: 048
  19. SANDOSTATIN LAR DEPOT [Suspect]
     Active Substance: OCTREOTIDE ACETATE
     Dosage: 40 MG, QMO, EVERY 28 DAYS
     Route: 030
  20. GABAPENTIN. [Concomitant]
     Active Substance: GABAPENTIN
     Indication: LIMB DISCOMFORT
     Dosage: 2 DF, QD
     Route: 048
  21. METFORMIN [Concomitant]
     Active Substance: METFORMIN HYDROCHLORIDE
     Indication: DIABETES MELLITUS
     Dosage: 3 DF, TID
     Route: 048
     Dates: start: 2009
  22. GLIMEPIRIDE. [Concomitant]
     Active Substance: GLIMEPIRIDE
     Indication: PRODUCT USED FOR UNKNOWN INDICATION
     Dosage: 1 DF, QD
     Route: 065
  23. SIMVASTATIN. [Concomitant]
     Active Substance: SIMVASTATIN
     Indication: NERVOUS SYSTEM DISORDER
     Dosage: 1 DF, QD
     Route: 048

REACTIONS (30)
  - Thyroid neoplasm [Unknown]
  - Speech disorder [Recovering/Resolving]
  - Malaise [Recovered/Resolved]
  - Dyspnoea [Recovering/Resolving]
  - Diabetes mellitus [Unknown]
  - Asthenia [Recovering/Resolving]
  - Headache [Recovering/Resolving]
  - Limb deformity [Not Recovered/Not Resolved]
  - Muscular weakness [Recovering/Resolving]
  - Drug ineffective [Not Recovered/Not Resolved]
  - Pain [Unknown]
  - Injection site induration [Unknown]
  - Pulmonary oedema [Recovering/Resolving]
  - Lung disorder [Recovered/Resolved]
  - Injection site pain [Unknown]
  - Lacrimation increased [Not Recovered/Not Resolved]
  - Gait disturbance [Unknown]
  - Neoplasm progression [Not Recovered/Not Resolved]
  - Dizziness [Recovered/Resolved]
  - Weight gain poor [Not Recovered/Not Resolved]
  - Dentofacial anomaly [Recovering/Resolving]
  - Syncope [Recovered/Resolved]
  - Eye pain [Not Recovered/Not Resolved]
  - Arthropathy [Recovering/Resolving]
  - Visual acuity reduced [Unknown]
  - Pain in extremity [Recovering/Resolving]
  - Blood growth hormone abnormal [Not Recovered/Not Resolved]
  - Diarrhoea [Recovered/Resolved]
  - Growth failure [Unknown]
  - Crying [Unknown]

NARRATIVE: CASE EVENT DATE: 2014
